FAERS Safety Report 5996589-1 (Version None)
Quarter: 2008Q4

REPORT INFORMATION
  Report Type: 
  Country: None (occurrence: None)
  Receive Date: 20081212
  Receipt Date: 20081021
  Transmission Date: 20090506
  Serious: No
  Sender: FDA-Public Use
  Company Number: US-ABBOTT-08P-163-0482911-00

PATIENT
  Sex: Male
  Weight: 80.812 kg

DRUGS (14)
  1. HUMIRA [Suspect]
     Indication: CROHN'S DISEASE
     Dosage: LOADING
     Dates: start: 20080826, end: 20080826
  2. HUMIRA [Suspect]
     Dosage: LOADING
     Dates: start: 20080827, end: 20080827
  3. HUMIRA [Suspect]
     Dosage: LOADING
     Dates: start: 20080909, end: 20080909
  4. HUMIRA [Suspect]
     Dates: start: 20080923
  5. PREDNISONE TAB [Concomitant]
     Indication: CROHN'S DISEASE
     Dosage: TABLET
     Route: 048
  6. PIOGLITAZONE [Concomitant]
     Indication: HYPERGLYCAEMIA
     Route: 048
  7. GLIMEPIRIDE [Concomitant]
     Indication: HYPERGLYCAEMIA
     Route: 048
  8. RISEDRONATE SODIUM [Concomitant]
     Indication: OSTEOPOROSIS
     Route: 048
  9. FEXOFENADINE [Concomitant]
     Indication: SEASONAL ALLERGY
     Route: 048
  10. AZATHIOPRINE [Concomitant]
     Indication: CROHN'S DISEASE
     Dosage: 100 MILLIGRAM TABLETS
     Route: 048
  11. LOMOTIL [Concomitant]
     Indication: DIARRHOEA
     Dosage: .025 TO 2.5 MILLIGRAMS
     Route: 048
  12. MULTI-VITAMIN [Concomitant]
     Indication: MINERAL SUPPLEMENTATION
     Route: 048
  13. OYSTCAL-D [Concomitant]
     Indication: VITAMIN SUPPLEMENTATION
     Route: 048
  14. ALIGN [Concomitant]
     Indication: DIARRHOEA
     Route: 048

REACTIONS (2)
  - MUSCLE TWITCHING [None]
  - VISION BLURRED [None]
